FAERS Safety Report 8560799-X (Version None)
Quarter: 2012Q3

REPORT INFORMATION
  Report Type: 
  Country: None (occurrence: None)
  Receive Date: 20120727
  Receipt Date: 20120727
  Transmission Date: 20120928
  Serious: Yes (Hospitalization)
  Sender: FDA-Public Use
  Company Number: None

PATIENT
  Age: 81 Year
  Sex: Female
  Weight: 86.2 kg

DRUGS (16)
  1. PEPCID [Concomitant]
  2. VENTOLIN HFA [Concomitant]
  3. LIPITOR [Concomitant]
  4. PLAVIX [Suspect]
     Indication: AORTIC VALVE REPLACEMENT
     Dosage: 75MG PO DAILY RECENT
     Route: 048
  5. FOLIC ACID [Concomitant]
  6. PROVENTIL [Concomitant]
  7. COUMADIN [Suspect]
     Indication: CORONARY ARTERY DISEASE
     Dosage: 4MG DAILY PO CHRONIC
     Route: 048
  8. LEVOTHYROXINE SODIUM [Concomitant]
  9. METOPROLOL TARTRATE [Concomitant]
  10. TYLENOL [Concomitant]
  11. GUAIFENESIN [Concomitant]
  12. MIRALAX [Concomitant]
  13. ASPIRIN [Suspect]
     Indication: PERIPHERAL VASCULAR DISORDER
     Dosage: 81MG DAILY PO RECENT
     Route: 048
  14. OXYCODONE HCL [Concomitant]
  15. VITAMIN D [Concomitant]
  16. VITAMIN B-12 [Concomitant]

REACTIONS (3)
  - ARTERIOVENOUS MALFORMATION [None]
  - HAEMORRHAGIC ANAEMIA [None]
  - LOWER GASTROINTESTINAL HAEMORRHAGE [None]
